FAERS Safety Report 8392114-9 (Version None)
Quarter: 2012Q2

REPORT INFORMATION
  Report Type: 
  Country: None (occurrence: None)
  Receive Date: 20120529
  Receipt Date: 20120515
  Transmission Date: 20120825
  Serious: Yes (Other)
  Sender: FDA-Public Use
  Company Number: TW-MYLANLABS-2012S1010175

PATIENT
  Age: 62 Year
  Sex: Female

DRUGS (3)
  1. PACLITAXEL [Suspect]
     Indication: OVARIAN EPITHELIAL CANCER
     Dosage: 175MG/M2 INFUSION
     Dates: start: 20080101
  2. BETAMETHASONE [Concomitant]
     Dosage: 16MG PRIOR TO PACLITAXEL INFUSION
     Route: 042
  3. CARBOPLATIN [Suspect]
     Indication: OVARIAN EPITHELIAL CANCER
     Dosage: AREA UNDER THE CURVE (AUC) 5-7.5
     Route: 065
     Dates: start: 20080101

REACTIONS (5)
  - DEPRESSION SUICIDAL [None]
  - FLUSHING [None]
  - NAUSEA [None]
  - FATIGUE [None]
  - VOMITING [None]
